FAERS Safety Report 5243985-6 (Version None)
Quarter: 2007Q1

REPORT INFORMATION
  Report Type: 
  Country: None (occurrence: None)
  Receive Date: 20070220
  Receipt Date: 20070220
  Transmission Date: 20070707
  Serious: No
  Sender: FDA-Public Use
  Company Number: None

PATIENT
  Sex: Female
  Weight: 48.0813 kg

DRUGS (2)
  1. YASMIN [Suspect]
     Indication: CONTRACEPTION
     Dosage: 28 TABLETS DAILY PO
     Route: 048
     Dates: start: 20030601, end: 20030802
  2. YASMIN [Suspect]
     Indication: MENORRHAGIA
     Dosage: 28 TABLETS DAILY PO
     Route: 048
     Dates: start: 20030601, end: 20030802

REACTIONS (12)
  - ANGER [None]
  - CARDIAC DISORDER [None]
  - CHEST DISCOMFORT [None]
  - CHEST PAIN [None]
  - DYSPNOEA [None]
  - EXTRASYSTOLES [None]
  - HYPOAESTHESIA [None]
  - IRRITABILITY [None]
  - MOOD SWINGS [None]
  - NAUSEA [None]
  - RASH PAPULAR [None]
  - RASH PRURITIC [None]
